FAERS Safety Report 23964628 (Version 1)
Quarter: 2024Q2

REPORT INFORMATION
  Report Type: Report from Study
  Country: CA (occurrence: CA)
  Receive Date: 20240612
  Receipt Date: 20240612
  Transmission Date: 20240716
  Serious: Yes (Other)
  Sender: FDA-Public Use
  Company Number: CA-ABBVIE-5795375

PATIENT
  Age: 63 Year
  Sex: Female

DRUGS (1)
  1. HUMIRA [Suspect]
     Active Substance: ADALIMUMAB
     Indication: Crohn^s disease
     Route: 058
     Dates: start: 20240120

REACTIONS (4)
  - Transfusion [Unknown]
  - Malaise [Unknown]
  - Pain [Recovering/Resolving]
  - Bladder disorder [Unknown]

NARRATIVE: CASE EVENT DATE: 20240101
